FAERS Safety Report 9341413 (Version 1)
Quarter: 2013Q2

REPORT INFORMATION
  Report Type: Spontaneous
  Country: US (occurrence: None)
  Receive Date: 20130610
  Receipt Date: 20130610
  Transmission Date: 20140414
  Serious: Yes (Hospitalization)
  Sender: FDA-Public Use
  Company Number: None

PATIENT
  Age: 83 Year
  Sex: Female
  Weight: 76.36 kg

DRUGS (2)
  1. DOCETAXEL (TAXOTERE) [Suspect]
  2. IRINOTECAN [Suspect]

REACTIONS (5)
  - Unresponsive to stimuli [None]
  - Sepsis [None]
  - Hypotension [None]
  - Dehydration [None]
  - Diarrhoea [None]
